FAERS Safety Report 15365990 (Version 1)
Quarter: 2018Q3

REPORT INFORMATION
  Report Type: Spontaneous
  Country: US (occurrence: US)
  Receive Date: 20180831
  Receipt Date: 20180831
  Transmission Date: 20181010
  Serious: No
  Sender: FDA-Public Use
  Company Number: None

PATIENT
  Age: 78 Year
  Sex: Male
  Weight: 65.32 kg

DRUGS (8)
  1. BUMETANIDE. [Concomitant]
     Active Substance: BUMETANIDE
  2. ELPERENONE [Concomitant]
  3. AMBIEN [Concomitant]
     Active Substance: ZOLPIDEM TARTRATE
  4. TERBINAFINE. [Suspect]
     Active Substance: TERBINAFINE
     Indication: ONYCHOMYCOSIS
  5. METOPROLOL. [Concomitant]
     Active Substance: METOPROLOL
  6. ENTRESTO [Concomitant]
     Active Substance: SACUBITRIL\VALSARTAN
  7. ELIQUIS [Concomitant]
     Active Substance: APIXABAN
  8. CRESTOR [Concomitant]
     Active Substance: ROSUVASTATIN CALCIUM

REACTIONS (3)
  - Feeding disorder [None]
  - Weight decreased [None]
  - Dysgeusia [None]
